FAERS Safety Report 5588121-1 (Version None)
Quarter: 2008Q1

REPORT INFORMATION
  Report Type: 
  Country: None (occurrence: None)
  Receive Date: 20080111
  Receipt Date: 20080102
  Transmission Date: 20080703
  Serious: Yes (Other)
  Sender: FDA-Public Use
  Company Number: US-ROCHE-539303

PATIENT
  Age: 79 Year
  Sex: Male

DRUGS (12)
  1. TAMIFLU [Suspect]
     Dosage: FOR 14 DAYS
     Route: 065
     Dates: start: 20071231
  2. ASPIRIN [Concomitant]
  3. CARBIDOPA AND LEVODOPA [Concomitant]
  4. FUROSEMIDE [Concomitant]
  5. GEODON [Concomitant]
     Dosage: FREQUENCY: PRN
     Route: 030
  6. GLIPIZIDE [Concomitant]
  7. LISINOPRIL [Concomitant]
  8. MEPROLOL [Concomitant]
  9. NEXIUM [Concomitant]
  10. POTASSIUM [Concomitant]
  11. 1 CONCOMITANT DRUG [Concomitant]
     Dosage: DRUG: TRAVADONE. DOSE TAKEN AT BEDTIME.
  12. SEROQUEL [Concomitant]
     Dosage: DOSE:25 MG TWICE DAILY AND 50 MG AT NOON.

REACTIONS (1)
  - CONVULSION [None]
